FAERS Safety Report 5201791-2 (Version None)
Quarter: 2006Q4

REPORT INFORMATION
  Report Type: 
  Country: None (occurrence: None)
  Receive Date: 20061002
  Receipt Date: 20051031
  Transmission Date: 20070319
  Serious: Yes (Hospitalization)
  Sender: FDA-Public Use
  Company Number: TPA2005A01212

PATIENT
  Age: 64 Year
  Sex: Female
  Weight: 108.8633 kg

DRUGS (2)
  1. ACTOS [Suspect]
     Indication: DIABETES MELLITUS NON-INSULIN-DEPENDENT
     Dosage: 45 MG, 1 IN 1 D, PER ORAL
     Route: 048
     Dates: start: 20011007
  2. AMARYL [Suspect]
     Indication: DIABETES MELLITUS
     Dosage: 2 MG, 1 IN 1 D, PER ORAL
     Route: 048
     Dates: end: 20050701

REACTIONS (1)
  - BLOOD GLUCOSE DECREASED [None]
